FAERS Safety Report 14036653 (Version 3)
Quarter: 2018Q1

REPORT INFORMATION
  Report Type: Spontaneous
  Country: US (occurrence: US)
  Receive Date: 20171003
  Receipt Date: 20180122
  Transmission Date: 20180508
  Serious: Yes (Hospitalization)
  Sender: FDA-Public Use
  Company Number: US-BIOMARINAP-US-2017-115588

PATIENT
  Sex: Male
  Weight: 62.9 kg

DRUGS (1)
  1. VIMIZIM [Suspect]
     Active Substance: ELOSULFASE ALFA
     Indication: MUCOPOLYSACCHARIDOSIS IV
     Dosage: 115 MG, QW
     Route: 042
     Dates: start: 20170814

REACTIONS (2)
  - Spinal instability [Recovering/Resolving]
  - Spinal decompression [Recovering/Resolving]

NARRATIVE: CASE EVENT DATE: 2008
